FAERS Safety Report 4397494-7 (Version None)
Quarter: 2004Q3

REPORT INFORMATION
  Report Type: 
  Country: None (occurrence: None)
  Receive Date: 20040714
  Receipt Date: 20040629
  Transmission Date: 20050211
  Serious: Yes (Hospitalization)
  Sender: FDA-Public Use
  Company Number: JP-BRISTOL-MYERS SQUIBB COMPANY-12628434

PATIENT
  Age: 47 Year
  Sex: Female

DRUGS (2)
  1. TAXOL [Suspect]
     Indication: BREAST CANCER METASTATIC
     Dosage: THERAPY DATES: 22 TO 29-MAY-2002
     Route: 042
     Dates: start: 20020529, end: 20020529
  2. HERCEPTIN [Concomitant]
     Route: 042
     Dates: start: 20020522, end: 20020529

REACTIONS (2)
  - HERPES ZOSTER [None]
  - WHITE BLOOD CELL COUNT DECREASED [None]
